FAERS Safety Report 6953971-3 (Version None)
Quarter: 2010Q3

REPORT INFORMATION
  Report Type: 
  Country: None (occurrence: None)
  Receive Date: 20100829
  Receipt Date: 20100701
  Transmission Date: 20110219
  Serious: No
  Sender: FDA-Public Use
  Company Number: US-ABBOTT-10P-163-0654937-00

PATIENT
  Sex: Female
  Weight: 107.6 kg

DRUGS (11)
  1. NIASPAN [Suspect]
     Indication: VITAMIN B COMPLEX DEFICIENCY
     Dosage: NIGHTLY
     Route: 048
     Dates: start: 20100625
  2. NIASPAN [Suspect]
     Indication: MALABSORPTION
  3. COUMADIN [Concomitant]
     Indication: PRODUCT USED FOR UNKNOWN INDICATION
  4. LASIX [Concomitant]
     Indication: PRODUCT USED FOR UNKNOWN INDICATION
  5. POTASSIUM [Concomitant]
     Indication: PRODUCT USED FOR UNKNOWN INDICATION
  6. TOPAMAX [Concomitant]
     Indication: PRODUCT USED FOR UNKNOWN INDICATION
  7. RITALIN [Concomitant]
     Indication: PRODUCT USED FOR UNKNOWN INDICATION
  8. VITAMIN 5 [Concomitant]
     Indication: PRODUCT USED FOR UNKNOWN INDICATION
  9. PYRIDOXINE HCL [Concomitant]
     Indication: VITAMIN SUPPLEMENTATION
  10. CALCIUM [Concomitant]
     Indication: MINERAL SUPPLEMENTATION
  11. XANAFRAX [Concomitant]
     Indication: MIGRAINE

REACTIONS (2)
  - FLUSHING [None]
  - PARAESTHESIA [None]
